FAERS Safety Report 14731332 (Version 1)
Quarter: 2018Q2

REPORT INFORMATION
  Report Type: Report from Study
  Country: US (occurrence: US)
  Receive Date: 20180407
  Receipt Date: 20180407
  Transmission Date: 20180711
  Serious: Yes (Other)
  Sender: FDA-Public Use
  Company Number: US-AMGEN-USASL2018044153

PATIENT
  Age: 69 Year
  Sex: Female

DRUGS (1)
  1. REPATHA [Suspect]
     Active Substance: EVOLOCUMAB
     Indication: HYPERLIPIDAEMIA
     Dosage: 140 MG, Q2WK
     Route: 058
     Dates: start: 201708

REACTIONS (3)
  - Back pain [Unknown]
  - Pharyngitis streptococcal [Unknown]
  - Arthropathy [Unknown]

NARRATIVE: CASE EVENT DATE: 2018
